FAERS Safety Report 5651761-5 (Version None)
Quarter: 2008Q1

REPORT INFORMATION
  Report Type: 
  Country: None (occurrence: None)
  Receive Date: 20080131
  Receipt Date: 20071118
  Transmission Date: 20080703
  Serious: No
  Sender: FDA-Public Use
  Company Number: US200711004302

PATIENT
  Age: 58 Year
  Sex: Male
  Weight: 96.6 kg

DRUGS (15)
  1. BYETTA [Suspect]
     Indication: INSULIN-REQUIRING TYPE 2 DIABETES MELLITUS
     Dosage: 5 UG, 2/D, SUBCUTANEOUS
     Route: 058
     Dates: start: 20071113
  2. LANTUS [Concomitant]
  3. AVALIDE [Concomitant]
  4. CADUET (AMLDOIPINE BESILATE, ATORVASTATIN CALCIUM) [Concomitant]
  5. BUPROPION HCL [Concomitant]
  6. PREVACID [Concomitant]
  7. POTASSIUM CHLORIDE (POTASSIUM CHLORIDE UNKNOWN FORMULATION) [Concomitant]
  8. HYDROCHLOROTHIAZIDE [Concomitant]
  9. RANITIDINE [Concomitant]
  10. ASPIRIN /USA/ (ACETYLSALICYLIC ACID) [Concomitant]
  11. CENTRUM (MINERALS NOS, VITAMINS NOS) [Concomitant]
  12. ASCORBIC ACID [Concomitant]
  13. SELENIUM (SELENIUM) [Concomitant]
  14. CALCIUM CITRATE (CALCIUM CITRATE) [Concomitant]
  15. OCUVITE PRESERVISION (ASCORBIC ACID, BETACAROTENE, COPPER, TOCOFERSOLA [Concomitant]

REACTIONS (5)
  - DECREASED APPETITE [None]
  - ERYTHEMA [None]
  - GOUT [None]
  - NAUSEA [None]
  - PAIN IN EXTREMITY [None]
